FAERS Safety Report 15563843 (Version 3)
Quarter: 2019Q1

REPORT INFORMATION
  Report Type: Report from Study
  Country: PT (occurrence: PT)
  Receive Date: 20181030
  Receipt Date: 20190121
  Transmission Date: 20190417
  Serious: Yes (Other)
  Sender: FDA-Public Use
  Company Number: PT-AUROBINDO-AUR-APL-2018-052171

PATIENT
  Age: 61 Year
  Sex: Male

DRUGS (6)
  1. VASELINE                           /00473501/ [Concomitant]
     Active Substance: PARAFFIN
     Indication: SKIN TEST
     Dosage: 10 PERCENT, 10 %, UNK
     Route: 065
     Dates: start: 2015
  2. AMOXICILLIN. [Suspect]
     Active Substance: AMOXICILLIN
     Indication: PRODUCT USED FOR UNKNOWN INDICATION
     Dosage: UNK
     Route: 065
     Dates: start: 2015
  3. METAMIZOLE [Suspect]
     Active Substance: METAMIZOLE
     Indication: SKIN TEST
     Dosage: UNK
     Route: 065
     Dates: start: 2015
  4. IMIPENEM [Suspect]
     Active Substance: IMIPENEM
     Indication: PRODUCT USED FOR UNKNOWN INDICATION
     Dosage: UNK
     Route: 065
     Dates: start: 2015
  5. NOLOTIL                            /00473101/ [Concomitant]
     Active Substance: METAMIZOLE\PROPOXYPHENE
     Indication: SKIN TEST
     Dosage: UNK
     Route: 065
     Dates: start: 2015
  6. VANCOMYCIN [Suspect]
     Active Substance: VANCOMYCIN
     Indication: PRODUCT USED FOR UNKNOWN INDICATION
     Dosage: UNK
     Route: 065
     Dates: start: 2015

REACTIONS (1)
  - Drug reaction with eosinophilia and systemic symptoms [Unknown]
